FAERS Safety Report 8489294-3 (Version None)
Quarter: 2012Q3

REPORT INFORMATION
  Report Type: 
  Country: None (occurrence: None)
  Receive Date: 20120705
  Receipt Date: 20120626
  Transmission Date: 20120928
  Serious: Yes (Hospitalization)
  Sender: FDA-Public Use
  Company Number: JP-ASTRAZENECA-2012SE40361

PATIENT

DRUGS (1)
  1. TENORMIN [Suspect]
     Dosage: NUMBER OF SEPARATE DOSAGES UNKNOWN
     Route: 064

REACTIONS (4)
  - BRADYCARDIA FOETAL [None]
  - LONG QT SYNDROME CONGENITAL [None]
  - FOETAL GROWTH RESTRICTION [None]
  - FOETAL EXPOSURE DURING PREGNANCY [None]
